FAERS Safety Report 5487556-5 (Version None)
Quarter: 2007Q4

REPORT INFORMATION
  Report Type: 
  Country: None (occurrence: None)
  Receive Date: 20071016
  Receipt Date: 20071004
  Transmission Date: 20080405
  Serious: Yes (Death)
  Sender: FDA-Public Use
  Company Number: FR-PFIZER INC-2007085776

PATIENT
  Sex: Male

DRUGS (6)
  1. VIRACEPT [Suspect]
     Dosage: TEXT:3 X PER 1 DAY
     Route: 048
     Dates: start: 19971215, end: 20070608
  2. COMBIVIR [Suspect]
     Dosage: TEXT:2 X PER 1 DAY
     Route: 048
     Dates: start: 20070608, end: 20070715
  3. KALETRA [Suspect]
     Dosage: TEXT:2 X PER 1 DAY
     Route: 048
     Dates: start: 20070608, end: 20070715
  4. ELISOR [Concomitant]
  5. KARDEGIC [Concomitant]
  6. ALL OTHER THERAPEUTIC PRODUCTS [Concomitant]

REACTIONS (1)
  - DEATH [None]
